FAERS Safety Report 17483483 (Version 1)
Quarter: 2020Q1

REPORT INFORMATION
  Report Type: Spontaneous
  Country: US (occurrence: US)
  Receive Date: 20200302
  Receipt Date: 20200302
  Transmission Date: 20200409
  Serious: No
  Sender: FDA-Public Use
  Company Number: US-GW PHARMA-202002USGW00727

PATIENT

DRUGS (1)
  1. EPIDIOLEX [Suspect]
     Active Substance: CANNABIDIOL
     Indication: PRODUCT USED FOR UNKNOWN INDICATION
     Dosage: 20 MG/KG/DAY, 480 MILLIGRAM, BID
     Route: 048

REACTIONS (3)
  - Seizure [Unknown]
  - Rash papular [Unknown]
  - Discomfort [Unknown]

NARRATIVE: CASE EVENT DATE: 202002
